FAERS Safety Report 6569617-2 (Version None)
Quarter: 2010Q1

REPORT INFORMATION
  Report Type: 
  Country: None (occurrence: None)
  Receive Date: 20100129
  Receipt Date: 20100115
  Transmission Date: 20100710
  Serious: Yes (Hospitalization)
  Sender: FDA-Public Use
  Company Number: C-10-0014

PATIENT
  Age: 54 Year
  Sex: Male
  Weight: 87.5442 kg

DRUGS (9)
  1. GENERLAC [Suspect]
     Indication: HEPATIC ENCEPHALOPATHY
     Dosage: 2 TBSP 3X DAILY 047
     Dates: start: 20091001, end: 20100101
  2. POTASSIUM CHLORIDE [Concomitant]
  3. AMILORIDE HYDROCHLORIDE [Concomitant]
  4. METOLAZONE [Concomitant]
  5. XIFAXIN (RIFAXIMIN) AN ANTIBIOTIC USED IN HYPERAMMONEMIC ENCEPHALOPATH [Concomitant]
  6. MULTI-VITAMINS [Concomitant]
  7. VITAMIN C [Concomitant]
  8. CALCIUM [Concomitant]
  9. LASIX [Concomitant]

REACTIONS (9)
  - ANAEMIA [None]
  - CONDITION AGGRAVATED [None]
  - CONSTIPATION [None]
  - ENCEPHALOPATHY [None]
  - HYPERAMMONAEMIA [None]
  - HYPOKALAEMIA [None]
  - HYPONATRAEMIA [None]
  - NAUSEA [None]
  - NO THERAPEUTIC RESPONSE [None]
